FAERS Safety Report 7554983-1 (Version None)
Quarter: 2011Q2

REPORT INFORMATION
  Report Type: 
  Country: None (occurrence: None)
  Receive Date: 20110615
  Receipt Date: 20110615
  Transmission Date: 20111010
  Serious: Yes (Hospitalization)
  Sender: FDA-Public Use
  Company Number: None

PATIENT
  Age: 61 Year
  Sex: Male
  Weight: 90.7194 kg

DRUGS (1)
  1. ALEVE [Suspect]
     Indication: FATIGUE
     Dosage: 2 A DAY FOR A FEW MONTHS

REACTIONS (4)
  - HAEMORRHOIDS [None]
  - MELAENA [None]
  - DIARRHOEA [None]
  - WHEEZING [None]
